FAERS Safety Report 4837685-1 (Version None)
Quarter: 2005Q4

REPORT INFORMATION
  Report Type: 
  Country: None (occurrence: None)
  Receive Date: 20051123
  Receipt Date: 20051123
  Transmission Date: 20060501
  Serious: Yes (Hospitalization)
  Sender: FDA-Public Use
  Company Number: None

PATIENT
  Sex: Female

DRUGS (7)
  1. GLYBURIDE [Suspect]
     Indication: DIABETES MELLITUS INSULIN-DEPENDENT
     Dosage: 10MG PO QAM   5MG PO QPM
     Route: 048
  2. LEVOTHYROXINE SODIUM [Concomitant]
  3. AMPLODIPINE [Concomitant]
  4. ASPIRIN/DIPYRIDAMOLE [Concomitant]
  5. ESCITALOPRAM OXALATE [Concomitant]
  6. LANSOPRAZOLE [Concomitant]
  7. ATORVASTATIN CALCIUM [Concomitant]

REACTIONS (5)
  - DRUG DOSE OMISSION [None]
  - HEMIPARESIS [None]
  - HYPERHIDROSIS [None]
  - HYPOGLYCAEMIA [None]
  - SPEECH DISORDER [None]
